FAERS Safety Report 21507736 (Version 1)
Quarter: 2022Q4

REPORT INFORMATION
  Report Type: Spontaneous
  Country: US (occurrence: None)
  Receive Date: 20221025
  Receipt Date: 20221025
  Transmission Date: 20230112
  Serious: Yes (Hospitalization)
  Sender: FDA-Public Use
  Company Number: None

PATIENT
  Sex: Female

DRUGS (2)
  1. ACTEMRA [Suspect]
     Active Substance: TOCILIZUMAB
     Indication: Scleroderma
     Dosage: OTHER QUANTITY : 162MG/0.9ML;?FREQUENCY : WEEKLY;?
     Route: 058
     Dates: start: 20220408
  2. ACTEMRA [Suspect]
     Active Substance: TOCILIZUMAB
     Indication: Lung disorder

REACTIONS (4)
  - Diarrhoea [None]
  - Constipation [None]
  - Nausea [None]
  - Vomiting [None]
